FAERS Safety Report 25227769 (Version 1)
Quarter: 2025Q2

REPORT INFORMATION
  Report Type: Report from Study
  Country: US (occurrence: US)
  Receive Date: 20250423
  Receipt Date: 20250423
  Transmission Date: 20250716
  Serious: Yes (Other)
  Sender: ABBVIE
  Company Number: US-ABBVIE-6178567

PATIENT
  Age: 68 Year
  Sex: Female
  Weight: 97 kg

DRUGS (7)
  1. HUMIRA [Suspect]
     Active Substance: ADALIMUMAB
     Indication: Arthritis
     Dosage: FORM STRENGTH: 40 MILIGRAM
     Route: 058
     Dates: end: 202502
  2. HUMIRA [Suspect]
     Active Substance: ADALIMUMAB
     Indication: Colitis ulcerative
     Dosage: FORM STRENGTH: 40 MILIGRAM
     Route: 058
     Dates: start: 20250328
  3. FLUOXETINE [Concomitant]
     Active Substance: FLUOXETINE HYDROCHLORIDE
     Indication: Depression
  4. TRAZODONE [Concomitant]
     Active Substance: TRAZODONE HYDROCHLORIDE
     Indication: Depression
  5. ROSUVASTATIN [Concomitant]
     Active Substance: ROSUVASTATIN
     Indication: Blood cholesterol
  6. RESTASIS [Concomitant]
     Active Substance: CYCLOSPORINE
     Indication: Dry eye
  7. LEVOTHYROXINE [Concomitant]
     Active Substance: LEVOTHYROXINE
     Indication: Hypothyroidism

REACTIONS (6)
  - Brain injury [Recovering/Resolving]
  - Confusional state [Unknown]
  - Memory impairment [Recovering/Resolving]
  - Accident [Unknown]
  - Gait disturbance [Not Recovered/Not Resolved]
  - Persistent postural-perceptual dizziness [Not Recovered/Not Resolved]

NARRATIVE: CASE EVENT DATE: 20220901
